FAERS Safety Report 18741396 (Version 1)
Quarter: 2021Q1

REPORT INFORMATION
  Report Type: Spontaneous
  Country: US (occurrence: US)
  Receive Date: 20210114
  Receipt Date: 20210114
  Transmission Date: 20210419
  Serious: No
  Sender: FDA-Public Use
  Company Number: US-ABBVIE-20K-163-3372047-00

PATIENT
  Age: 69 Year
  Sex: Female
  Weight: 40.86 kg

DRUGS (1)
  1. DUOPA [Suspect]
     Active Substance: CARBIDOPA\LEVODOPA
     Indication: PARKINSON^S DISEASE
     Route: 050
     Dates: start: 20190331

REACTIONS (9)
  - Skin exfoliation [Not Recovered/Not Resolved]
  - Gastric dilatation [Recovering/Resolving]
  - Device issue [Not Recovered/Not Resolved]
  - Anxiety [Not Recovered/Not Resolved]
  - Stoma site pain [Not Recovered/Not Resolved]
  - Device alarm issue [Unknown]
  - Device dislocation [Recovered/Resolved]
  - Device physical property issue [Not Recovered/Not Resolved]
  - Stoma site discomfort [Not Recovered/Not Resolved]

NARRATIVE: CASE EVENT DATE: 2019
